FAERS Safety Report 26000546 (Version 2)
Quarter: 2025Q4

REPORT INFORMATION
  Report Type: Spontaneous
  Country: CA (occurrence: CA)
  Receive Date: 20251105
  Receipt Date: 20251215
  Transmission Date: 20260118
  Serious: No
  Sender: ABBVIE
  Company Number: CA-ABBVIE-6529171

PATIENT

DRUGS (1)
  1. LUMIGAN [Suspect]
     Active Substance: BIMATOPROST
     Indication: Product used for unknown indication
     Dosage: LUMIGAN RC 5 ML MULTIDOSE BOTTLE,?DOSAGE FORM: SUSPENSION/DROPS
     Route: 047

REACTIONS (1)
  - No adverse event [Unknown]
